FAERS Safety Report 9543469 (Version 1)
Quarter: 2013Q2

REPORT INFORMATION
  Report Type: Spontaneous
  Country: US (occurrence: None)
  Receive Date: 20130524
  Receipt Date: 20130524
  Transmission Date: 20140414
  Serious: No
  Sender: FDA-Public Use
  Company Number: PHEH2013US004115

PATIENT
  Age: 43 Year
  Sex: Female

DRUGS (2)
  1. GILENYA (FINGOLIMOD) [Suspect]
     Indication: MULTIPLE SCLEROSIS
     Route: 048
     Dates: start: 20130215, end: 20130215
  2. BENADRYL (CAMPHOR, DIPHENHYDRAMINE HYDROCHLORIDE, ZINC OXIDE) [Concomitant]

REACTIONS (6)
  - Hypersensitivity [None]
  - Urticaria [None]
  - Abdominal pain lower [None]
  - Fatigue [None]
  - Somnolence [None]
  - Pruritus [None]
